FAERS Safety Report 18334921 (Version 1)
Quarter: 2020Q4

REPORT INFORMATION
  Report Type: Spontaneous
  Country: FR (occurrence: FR)
  Receive Date: 20201001
  Receipt Date: 20201001
  Transmission Date: 20210113
  Serious: Yes (Other)
  Sender: FDA-Public Use
  Company Number: FR-009507513-2009FRA010623

PATIENT
  Sex: Female

DRUGS (1)
  1. PREVYMIS [Suspect]
     Active Substance: LETERMOVIR
     Indication: LUNG TRANSPLANT
     Dosage: UNK
     Route: 048

REACTIONS (2)
  - Pathogen resistance [Unknown]
  - Off label use [Unknown]

NARRATIVE: CASE EVENT DATE: 20200909
